FAERS Safety Report 4785635-9 (Version None)
Quarter: 2005Q3

REPORT INFORMATION
  Report Type: 
  Country: None (occurrence: None)
  Receive Date: 20050929
  Receipt Date: 20050916
  Transmission Date: 20060218
  Serious: Yes (Hospitalization)
  Sender: FDA-Public Use
  Company Number: CHWYE984716SEP05

PATIENT
  Age: 35 Year
  Sex: Male

DRUGS (11)
  1. RAPAMUNE [Suspect]
     Dosage: 1 MG 1X PER 1 DAY ORAL - SEE IMAGE
     Route: 048
     Dates: start: 20050524, end: 20050530
  2. RAPAMUNE [Suspect]
     Dosage: 1 MG 1X PER 1 DAY ORAL - SEE IMAGE
     Route: 048
     Dates: start: 20050601, end: 20050616
  3. RAPAMUNE [Suspect]
     Dosage: 1 MG 1X PER 1 DAY ORAL - SEE IMAGE
     Route: 048
     Dates: start: 20050617
  4. FOLIC ACID (FOLIC AICD) [Concomitant]
  5. PANTOZOL (PANTOPRAZOLE) [Concomitant]
  6. BACTRIM PORTE (SULFAMETHOXAZOLE/TRIMETHOPRIM) [Concomitant]
  7. DIFLUCAN [Concomitant]
  8. MAGNESIOCARD (MAGNESIUM ASPARTATE HYDROCHLORIDE) [Concomitant]
  9. KCL TAB [Concomitant]
  10. VALTREX [Concomitant]
  11. PREDNISONE [Concomitant]

REACTIONS (11)
  - ALANINE AMINOTRANSFERASE INCREASED [None]
  - ASPARTATE AMINOTRANSFERASE INCREASED [None]
  - BLOOD ALKALINE PHOSPHATASE INCREASED [None]
  - CONDITION AGGRAVATED [None]
  - GAMMA-GLUTAMYLTRANSFERASE INCREASED [None]
  - GRAFT VERSUS HOST DISEASE [None]
  - HEPATOCELLULAR DAMAGE [None]
  - HYPERTRIGLYCERIDAEMIA [None]
  - HYPOKALAEMIA [None]
  - HYPOPHOSPHATAEMIA [None]
  - THROMBOCYTOPENIA [None]
